FAERS Safety Report 4340737-6 (Version None)
Quarter: 2004Q2

REPORT INFORMATION
  Report Type: 
  Country: None (occurrence: None)
  Receive Date: 20040414
  Receipt Date: 20040402
  Transmission Date: 20050107
  Serious: Yes (Life-Threatening, Hospitalization, Other)
  Sender: FDA-Public Use
  Company Number: RB-601-2004

PATIENT
  Sex: Male

DRUGS (2)
  1. BUPRENORPHINE HYDROCHLORIDE [Suspect]
     Indication: DRUG DEPENDENCE
     Dosage: 20 MG, 20 MG/60 MG/110 MG SL
  2. METHADONE HCL [Suspect]

REACTIONS (2)
  - COMA [None]
  - INTENTIONAL MISUSE [None]
